FAERS Safety Report 16485820 (Version 2)
Quarter: 2019Q2

REPORT INFORMATION
  Report Type: Spontaneous
  Country: US (occurrence: US)
  Receive Date: 20190627
  Receipt Date: 20190627
  Transmission Date: 20190711
  Serious: Yes (Death, Other)
  Sender: FDA-Public Use
  Company Number: PHHY2019US146265

PATIENT
  Age: 44 Year
  Sex: Female

DRUGS (4)
  1. DOXORUBICIN [Suspect]
     Active Substance: DOXORUBICIN
     Indication: SARCOMATOID CARCINOMA OF THE LUNG
     Route: 065
  2. IFOSFAMIDE. [Suspect]
     Active Substance: IFOSFAMIDE
     Indication: SARCOMATOID CARCINOMA OF THE LUNG
     Route: 065
  3. PACLITAXEL. [Suspect]
     Active Substance: PACLITAXEL
     Indication: SARCOMATOID CARCINOMA OF THE LUNG
     Route: 065
  4. IMATINIB. [Suspect]
     Active Substance: IMATINIB MESYLATE
     Indication: SARCOMATOID CARCINOMA OF THE LUNG
     Route: 065

REACTIONS (7)
  - Malignant neoplasm progression [Unknown]
  - Superior vena cava syndrome [Fatal]
  - Pulmonary artery occlusion [Unknown]
  - Pleural effusion [Unknown]
  - Sarcomatoid carcinoma of the lung [Unknown]
  - Atelectasis [Unknown]
  - Product use in unapproved indication [Unknown]
